FAERS Safety Report 7987776-1 (Version None)
Quarter: 2011Q4

REPORT INFORMATION
  Report Type: 
  Country: None (occurrence: None)
  Receive Date: 20111216
  Receipt Date: 20111209
  Transmission Date: 20120403
  Serious: Yes (Hospitalization)
  Sender: FDA-Public Use
  Company Number: PHHY2011US107726

PATIENT
  Age: 23 Year
  Sex: Female

DRUGS (1)
  1. OMEPRAZOLE [Suspect]
     Indication: GASTROOESOPHAGEAL REFLUX DISEASE

REACTIONS (8)
  - ABDOMINAL PAIN [None]
  - GASTRITIS [None]
  - LEUKOCYTOSIS [None]
  - ABDOMINAL TENDERNESS [None]
  - CHILLS [None]
  - TACHYCARDIA [None]
  - PYREXIA [None]
  - VOMITING [None]
